FAERS Safety Report 21599292 (Version 1)
Quarter: 2022Q4

REPORT INFORMATION
  Report Type: Spontaneous
  Country: US (occurrence: None)
  Receive Date: 20221114
  Receipt Date: 20221114
  Transmission Date: 20230112
  Serious: Yes (Hospitalization)
  Sender: FDA-Public Use
  Company Number: None

PATIENT
  Age: 68 Year
  Sex: Female

DRUGS (1)
  1. LENALIDOMIDE [Suspect]
     Active Substance: LENALIDOMIDE
     Indication: Plasma cell myeloma
     Dosage: FREQUENCY : DAILY;?
     Route: 048
     Dates: start: 20220809, end: 20221017

REACTIONS (6)
  - Cardiac failure acute [None]
  - Cardiac failure congestive [None]
  - Pneumonia [None]
  - Pericardial effusion [None]
  - Mitral valve incompetence [None]
  - Mitral valve incompetence [None]

NARRATIVE: CASE EVENT DATE: 20221016
